FAERS Safety Report 18256734 (Version 1)
Quarter: 2020Q3

REPORT INFORMATION
  Report Type: Spontaneous
  Country: AU (occurrence: AU)
  Receive Date: 20200911
  Receipt Date: 20200911
  Transmission Date: 20201103
  Serious: Yes (Other)
  Sender: FDA-Public Use
  Company Number: AU-ASTRAZENECA-2020SF15582

PATIENT
  Age: 60 Year
  Sex: Male

DRUGS (3)
  1. INSULIN (NOVOMIX 30) [Concomitant]
     Indication: LATENT AUTOIMMUNE DIABETES IN ADULTS
     Dosage: 30 UNITS TWICE DAILY
     Route: 065
  2. DAPAGLIFLOZIN. [Suspect]
     Active Substance: DAPAGLIFLOZIN
     Indication: LATENT AUTOIMMUNE DIABETES IN ADULTS
     Route: 048
  3. METFORMIN [Concomitant]
     Active Substance: METFORMIN HYDROCHLORIDE
     Indication: LATENT AUTOIMMUNE DIABETES IN ADULTS
     Route: 065

REACTIONS (2)
  - Gastrointestinal disorder [Unknown]
  - Diabetic ketoacidosis [Unknown]
